FAERS Safety Report 16354881 (Version 2)
Quarter: 2020Q1

REPORT INFORMATION
  Report Type: Report from Study
  Country: CO (occurrence: CO)
  Receive Date: 20190524
  Receipt Date: 20200225
  Transmission Date: 20200409
  Serious: Yes (Hospitalization)
  Sender: FDA-Public Use
  Company Number: PHHY2019CO117418

PATIENT
  Age: 5 Year
  Sex: Female
  Weight: 17 kg

DRUGS (4)
  1. JADENU [Suspect]
     Active Substance: DEFERASIROX
     Indication: APLASTIC ANAEMIA
     Dosage: 180 MG, QD
     Route: 048
  2. JADENU [Suspect]
     Active Substance: DEFERASIROX
     Dosage: 180 MG, QOD
     Route: 048
     Dates: start: 20190328
  3. HYDROXYUREA. [Concomitant]
     Active Substance: HYDROXYUREA
     Indication: INFECTION PROPHYLAXIS
     Dosage: 500 MG, QD
     Route: 065
  4. FOLIC ACID. [Concomitant]
     Active Substance: FOLIC ACID
     Indication: PRODUCT USED FOR UNKNOWN INDICATION
     Dosage: 1 DF, QD
     Route: 065

REACTIONS (6)
  - Inappropriate schedule of product administration [Unknown]
  - Pyrexia [Recovered/Resolved]
  - Serum ferritin increased [Unknown]
  - Influenza [Recovered/Resolved]
  - Cough [Unknown]
  - Haemoglobin decreased [Unknown]

NARRATIVE: CASE EVENT DATE: 20190424
